FAERS Safety Report 18631876 (Version 1)
Quarter: 2020Q4

REPORT INFORMATION
  Report Type: Report from Study
  Country: None (occurrence: BE)
  Receive Date: 20201218
  Receipt Date: 20201218
  Transmission Date: 20210114
  Serious: Yes (Death, Hospitalization)
  Sender: FDA-Public Use
  Company Number: BE-ABBVIE-20K-013-3697608-00

PATIENT
  Age: 57 Year
  Sex: Male

DRUGS (6)
  1. DUODOPA [Suspect]
     Active Substance: CARBIDOPA\LEVODOPA
     Indication: PARKINSON^S DISEASE
     Dosage: UNKNOWN DOSAGES
     Route: 050
     Dates: start: 20130121, end: 20200701
  2. STALEVO [Concomitant]
     Active Substance: CARBIDOPA\ENTACAPONE\LEVODOPA
     Indication: PARKINSON^S DISEASE
     Dosage: FORM STRENGTH: 100MG/25MG/200MG; UNIT DOSE: 1 UNIT
     Route: 048
  3. STALEVO [Concomitant]
     Active Substance: CARBIDOPA\ENTACAPONE\LEVODOPA
     Indication: PARKINSON^S DISEASE
     Dosage: FORM STRENGTH: 150MG/37.5MG/200MG; UNIT DOSE: 1 UNIT
     Route: 048
  4. DUODOPA [Suspect]
     Active Substance: CARBIDOPA\LEVODOPA
     Dosage: MD= 2.0 ML, CD= 2.0 ML/HR DURING 16HRS, ED= 0.5 ML, ND= 1.2 ML/HR DURING 8HRS
     Route: 050
     Dates: start: 20200701, end: 20200728
  5. DUODOPA [Suspect]
     Active Substance: CARBIDOPA\LEVODOPA
     Dosage: MD= 2.0 ML, CD= 2.2 ML/HR DURING 16HRS, ED= 0.5 ML, ND= 1.2 ML/HR DURING 8HRS
     Route: 050
     Dates: start: 20200728
  6. AZILECT [Concomitant]
     Active Substance: RASAGILINE MESYLATE
     Indication: PARKINSON^S DISEASE
     Route: 048

REACTIONS (1)
  - Malaise [Fatal]
